FAERS Safety Report 9475894 (Version 1)
Quarter: 2013Q3

REPORT INFORMATION
  Report Type: Spontaneous
  Country: US (occurrence: US)
  Receive Date: 20130826
  Receipt Date: 20130826
  Transmission Date: 20140515
  Serious: No
  Sender: FDA-Public Use
  Company Number: US-PFIZER INC-2013245754

PATIENT
  Age: 55 Year
  Sex: Female
  Weight: 72.6 kg

DRUGS (4)
  1. CHANTIX [Suspect]
     Indication: SMOKING CESSATION THERAPY
     Dosage: 0.5 MG, 1X/DAY
     Route: 048
     Dates: start: 201106, end: 2011
  2. CHANTIX [Suspect]
     Dosage: UNK
     Route: 048
     Dates: start: 2011, end: 201108
  3. PRAVASTATIN [Concomitant]
     Indication: BLOOD CHOLESTEROL INCREASED
     Dosage: UNK
  4. FENTANYL [Concomitant]
     Indication: PAIN
     Dosage: 75 UG, UNK

REACTIONS (2)
  - Nausea [Unknown]
  - Abnormal dreams [Unknown]
